FAERS Safety Report 6473742-4 (Version None)
Quarter: 2009Q4

REPORT INFORMATION
  Report Type: 
  Country: None (occurrence: None)
  Receive Date: 20091204
  Receipt Date: 20091126
  Transmission Date: 20100525
  Serious: Yes (Other)
  Sender: FDA-Public Use
  Company Number: HR-JNJFOC-20091200164

PATIENT
  Age: 78 Year
  Sex: Female

DRUGS (4)
  1. RISPOLEPT [Suspect]
     Indication: MENTAL DISORDER DUE TO A GENERAL MEDICAL CONDITION
     Route: 065
  2. LEVOTHYROXINE SODIUM [Concomitant]
     Route: 065
  3. ENAP [Concomitant]
     Route: 065
  4. PROMAZINE HYDROCHLORIDE [Concomitant]

REACTIONS (3)
  - CLONUS [None]
  - DRUG INEFFECTIVE [None]
  - PARKINSONISM [None]
